FAERS Safety Report 9424390 (Version 2)
Quarter: 2013Q4

REPORT INFORMATION
  Report Type: Spontaneous
  Country: FR (occurrence: FR)
  Receive Date: 20130729
  Receipt Date: 20131115
  Transmission Date: 20140711
  Serious: Yes (Death, Other)
  Sender: FDA-Public Use
  Company Number: FR-JNJFOC-20130713186

PATIENT
  Sex: Female
  Weight: 60 kg

DRUGS (10)
  1. XARELTO [Suspect]
     Indication: PRODUCT USED FOR UNKNOWN INDICATION
     Route: 048
     Dates: start: 20130618
  2. XANAX [Concomitant]
     Route: 048
  3. LOVENOX [Concomitant]
     Route: 058
  4. COVERSYL [Concomitant]
     Route: 048
  5. FUROSEMIDE [Concomitant]
     Route: 048
  6. LERCANIDIPINE [Concomitant]
     Route: 065
  7. AMIODARONE [Concomitant]
     Route: 065
  8. BISOPROLOL [Concomitant]
     Route: 065
  9. KARDEGIC [Concomitant]
     Route: 065
  10. FUMAFER [Concomitant]
     Route: 065

REACTIONS (2)
  - Pulmonary embolism [Fatal]
  - Drug ineffective [Unknown]
